FAERS Safety Report 19494546 (Version 1)
Quarter: 2021Q3

REPORT INFORMATION
  Report Type: Other
  Country: ES (occurrence: ES)
  Receive Date: 20210706
  Receipt Date: 20210706
  Transmission Date: 20211014
  Serious: Yes (Disabling)
  Sender: FDA-Public Use
  Company Number: ES-DEXPHARM-20210924

PATIENT
  Age: 62 Year
  Sex: Female

DRUGS (4)
  1. MIANSERIN [Interacting]
     Active Substance: MIANSERIN
     Indication: DEPRESSION
  2. VENLAFAXINE [Suspect]
     Active Substance: VENLAFAXINE HYDROCHLORIDE
     Indication: DEPRESSION
  3. LAMOTRIGINE. [Interacting]
     Active Substance: LAMOTRIGINE
     Indication: DEPRESSION
  4. OLANZAPINE. [Interacting]
     Active Substance: OLANZAPINE
     Indication: DEPRESSION

REACTIONS (3)
  - Camptocormia [Recovered/Resolved]
  - Drug interaction [Recovered/Resolved]
  - Pleurothotonus [Recovered/Resolved]
